FAERS Safety Report 6206340-8 (Version None)
Quarter: 2009Q2

REPORT INFORMATION
  Report Type: 
  Country: None (occurrence: None)
  Receive Date: 20090528
  Receipt Date: 20090521
  Transmission Date: 20091009
  Serious: Yes (Other)
  Sender: FDA-Public Use
  Company Number: PHEH2009US05123

PATIENT
  Sex: Female

DRUGS (1)
  1. RECLAST [Suspect]
     Dosage: UNK
     Dates: start: 20081201, end: 20081201

REACTIONS (4)
  - FACIAL PALSY [None]
  - JAW DISORDER [None]
  - PAIN IN EXTREMITY [None]
  - SWELLING FACE [None]
